FAERS Safety Report 9631976 (Version 7)
Quarter: 2014Q4

REPORT INFORMATION
  Report Type: Spontaneous
  Country: US (occurrence: US)
  Receive Date: 20131018
  Receipt Date: 20141209
  Transmission Date: 20150529
  Serious: Yes (Hospitalization, Other)
  Sender: FDA-Public Use
  Company Number: US-009507513-1110USA02259

PATIENT
  Sex: Female

DRUGS (4)
  1. FOSAMAX [Suspect]
     Active Substance: ALENDRONATE SODIUM
     Indication: OSTEOPOROSIS
     Dosage: 70 MG, UNK
     Route: 048
     Dates: start: 20040330, end: 200704
  2. FOSAMAX [Suspect]
     Active Substance: ALENDRONATE SODIUM
     Indication: OSTEOPENIA
  3. SYNTHROID [Concomitant]
     Active Substance: LEVOTHYROXINE SODIUM
     Dosage: 88 MICRO-G/MICRO-L, QD
     Route: 048
     Dates: start: 1977
  4. BONIVA [Suspect]
     Active Substance: IBANDRONATE SODIUM
     Indication: OSTEOPENIA
     Dosage: 150 MG, UNK
     Route: 048
     Dates: start: 20070423, end: 20100803

REACTIONS (24)
  - Nausea [Unknown]
  - Intramedullary rod insertion [Recovering/Resolving]
  - Anaemia postoperative [Recovering/Resolving]
  - Urinary tract infection [Recovered/Resolved]
  - Femur fracture [Recovering/Resolving]
  - Femur fracture [Recovering/Resolving]
  - Thyroidectomy [Unknown]
  - Splenectomy [Unknown]
  - Hysterectomy [Unknown]
  - Gastrooesophageal reflux disease [Recovering/Resolving]
  - Open reduction of fracture [Recovering/Resolving]
  - Haematocrit abnormal [Recovering/Resolving]
  - Osteoarthritis [Unknown]
  - Cholecystectomy [Unknown]
  - Impaired healing [Recovering/Resolving]
  - Bundle branch block left [Unknown]
  - Sinus bradycardia [Unknown]
  - Humerus fracture [Recovering/Resolving]
  - Lung disorder [Unknown]
  - Sleep disorder [Unknown]
  - Femur fracture [Recovering/Resolving]
  - Fall [Unknown]
  - Hypertension [Unknown]
  - Hypothyroidism [Unknown]

NARRATIVE: CASE EVENT DATE: 2004
